FAERS Safety Report 21986934 (Version 1)
Quarter: 2023Q1

REPORT INFORMATION
  Report Type: Report from Study
  Country: PT (occurrence: PT)
  Receive Date: 20230213
  Receipt Date: 20230213
  Transmission Date: 20230417
  Serious: No
  Sender: FDA-Public Use
  Company Number: PT-AMRYT PHARMACEUTICALS DAC-AEGR006270

PATIENT

DRUGS (1)
  1. METRELEPTIN [Suspect]
     Active Substance: METRELEPTIN
     Indication: Congenital generalised lipodystrophy
     Route: 058

REACTIONS (2)
  - Maternal exposure during pregnancy [Unknown]
  - Therapy cessation [Unknown]
